FAERS Safety Report 17994796 (Version 1)
Quarter: 2020Q3

REPORT INFORMATION
  Report Type: Spontaneous
  Country: US (occurrence: US)
  Receive Date: 20200708
  Receipt Date: 20200708
  Transmission Date: 20201103
  Serious: Yes (Death)
  Sender: FDA-Public Use
  Company Number: None

PATIENT
  Age: 61 Year
  Sex: Female
  Weight: 111 kg

DRUGS (7)
  1. ROCEPHINE [Concomitant]
     Active Substance: CEFTRIAXONE SODIUM
     Dates: start: 20200701, end: 20200701
  2. DEXAMETHASONE. [Concomitant]
     Active Substance: DEXAMETHASONE
     Dates: start: 20200701, end: 20200703
  3. REMDESIVIR. [Suspect]
     Active Substance: REMDESIVIR
     Indication: COVID-19
     Route: 041
     Dates: start: 20200626, end: 20200702
  4. DIAMOX SEQUELS [Concomitant]
     Active Substance: ACETAZOLAMIDE
     Dates: start: 20200630, end: 20200702
  5. HUMAN ALBUMIN [Concomitant]
     Active Substance: ALBUMIN HUMAN
     Dates: start: 20200628, end: 20200702
  6. CEFEPIME [Concomitant]
     Active Substance: CEFEPIME HYDROCHLORIDE
     Dates: start: 20200630, end: 20200701
  7. LOVENOX [Concomitant]
     Active Substance: ENOXAPARIN SODIUM
     Dates: start: 20200701, end: 20200702

REACTIONS (11)
  - Streptococcus test positive [None]
  - Otorrhoea [None]
  - Hypoxia [None]
  - Aspartate aminotransferase increased [None]
  - Hypercapnia [None]
  - Atrial fibrillation [None]
  - Acute respiratory failure [None]
  - Oxygen saturation decreased [None]
  - Death [None]
  - Body temperature increased [None]
  - Cardiac arrest [None]

NARRATIVE: CASE EVENT DATE: 20200703
